FAERS Safety Report 9211090 (Version 2)
Quarter: 2015Q2

REPORT INFORMATION
  Report Type: Spontaneous
  Country: US (occurrence: US)
  Receive Date: 20130404
  Receipt Date: 20150527
  Transmission Date: 20150821
  Serious: No
  Sender: FDA-Public Use
  Company Number: US-ASTRAZENECA-2013SE18752

PATIENT
  Age: 76 Year
  Sex: Female
  Weight: 58.5 kg

DRUGS (18)
  1. PRILOSEC [Suspect]
     Active Substance: OMEPRAZOLE MAGNESIUM
     Indication: GASTROOESOPHAGEAL REFLUX DISEASE
     Route: 048
  2. BIOTIN [Concomitant]
     Active Substance: BIOTIN
     Indication: DIABETES MELLITUS
  3. METFORMIN [Concomitant]
     Active Substance: METFORMIN HYDROCHLORIDE
     Indication: DIABETES MELLITUS
  4. FISH OIL [Concomitant]
     Active Substance: FISH OIL
     Indication: DIABETES MELLITUS
  5. VITAMIN B [Concomitant]
     Active Substance: VITAMIN B
     Indication: DIABETES MELLITUS
  6. PRILOSEC [Suspect]
     Active Substance: OMEPRAZOLE MAGNESIUM
     Indication: GASTROOESOPHAGEAL REFLUX DISEASE
     Dosage: DAILY
     Route: 048
  7. POTASSIUM CITRATE. [Concomitant]
     Active Substance: POTASSIUM CITRATE
     Indication: NEPHROLITHIASIS
  8. TEMAZEPAM. [Concomitant]
     Active Substance: TEMAZEPAM
     Indication: DIABETES MELLITUS
  9. CENTRUM SILVER [Concomitant]
     Active Substance: VITAMINS
     Indication: DIABETES MELLITUS
  10. MACROBID [Concomitant]
     Active Substance: NITROFURANTOIN\NITROFURANTOIN MONOHYDRATE
     Indication: URINARY TRACT INFECTION
  11. TRAMADOL [Concomitant]
     Active Substance: TRAMADOL
     Indication: DIABETES MELLITUS
  12. NEXIUM [Suspect]
     Active Substance: ESOMEPRAZOLE MAGNESIUM
     Indication: GASTROOESOPHAGEAL REFLUX DISEASE
     Route: 048
  13. SODIUM BICARBONATE. [Concomitant]
     Active Substance: SODIUM BICARBONATE
     Indication: NEPHROLITHIASIS
  14. FOLIC ACID. [Concomitant]
     Active Substance: FOLIC ACID
     Indication: DIABETES MELLITUS
  15. NIACIN FLUSH FREE [Concomitant]
     Indication: DIABETES MELLITUS
  16. NEXIUM [Suspect]
     Active Substance: ESOMEPRAZOLE MAGNESIUM
     Indication: GASTROOESOPHAGEAL REFLUX DISEASE
     Dosage: EVERY OTHER DAY
     Route: 048
  17. VITAMIN E [Concomitant]
     Active Substance: .ALPHA.-TOCOPHEROL
     Indication: DIABETES MELLITUS
  18. MAGNESIUM OXIDE. [Concomitant]
     Active Substance: MAGNESIUM OXIDE
     Indication: NEPHROLITHIASIS

REACTIONS (7)
  - Intentional product misuse [Unknown]
  - Drug dose omission [Unknown]
  - Throat irritation [Unknown]
  - Body height decreased [Unknown]
  - Gastrooesophageal reflux disease [Unknown]
  - Nasal discomfort [Unknown]
  - Drug ineffective [Unknown]
